FAERS Safety Report 24859843 (Version 6)
Quarter: 2025Q2

REPORT INFORMATION
  Report Type: Report from Study
  Country: DE (occurrence: DE)
  Receive Date: 20250119
  Receipt Date: 20250416
  Transmission Date: 20250716
  Serious: Yes (Hospitalization)
  Sender: ABBVIE
  Company Number: DE-ABBVIE-6091744

PATIENT
  Age: 79 Year
  Sex: Male

DRUGS (1)
  1. FOSCARBIDOPA\FOSLEVODOPA [Suspect]
     Active Substance: FOSCARBIDOPA\FOSLEVODOPA
     Indication: Parkinson^s disease
     Route: 058
     Dates: start: 20241120

REACTIONS (7)
  - Pneumonia [Not Recovered/Not Resolved]
  - Escherichia infection [Recovering/Resolving]
  - Stoma site discharge [Recovering/Resolving]
  - Stoma complication [Unknown]
  - Nosocomial infection [Recovering/Resolving]
  - On and off phenomenon [Unknown]
  - Enterococcal infection [Recovering/Resolving]

NARRATIVE: CASE EVENT DATE: 20250301
